FAERS Safety Report 24945521 (Version 2)
Quarter: 2025Q2

REPORT INFORMATION
  Report Type: Spontaneous
  Country: FR (occurrence: FR)
  Receive Date: 20250209
  Receipt Date: 20250403
  Transmission Date: 20250716
  Serious: No
  Sender: ALEXION PHARMACEUTICALS
  Company Number: FR-AstraZeneca-CH-00798889AM

PATIENT
  Age: 87 Year

DRUGS (1)
  1. PULMICORT TURBUHALER [Suspect]
     Active Substance: BUDESONIDE
     Indication: Bronchitis chronic
     Dosage: 400 MICROGRAM, BID

REACTIONS (2)
  - Off label use [Unknown]
  - Wrong technique in product usage process [Unknown]
